FAERS Safety Report 16339001 (Version 2)
Quarter: 2019Q3

REPORT INFORMATION
  Report Type: Spontaneous
  Country: FR (occurrence: FR)
  Receive Date: 20190521
  Receipt Date: 20190830
  Transmission Date: 20191004
  Serious: Yes (Other)
  Sender: FDA-Public Use
  Company Number: PHHY2019FR111915

PATIENT
  Age: 63 Year
  Sex: Female
  Weight: 103.9 kg

DRUGS (2)
  1. VANCOMYCIN [Suspect]
     Active Substance: VANCOMYCIN
     Indication: SUPERINFECTION BACTERIAL
     Dosage: 1500 MG, QD
     Route: 041
     Dates: start: 20131110, end: 20131128
  2. IOMERON [Suspect]
     Active Substance: IOMEPROL
     Indication: COMPUTERISED TOMOGRAM ABDOMEN
     Dosage: 95 ML, UNK (TOTAL)
     Route: 042
     Dates: start: 20131125, end: 20131125

REACTIONS (1)
  - Acute generalised exanthematous pustulosis [Recovered/Resolved]

NARRATIVE: CASE EVENT DATE: 20131127
